FAERS Safety Report 6333681-6 (Version None)
Quarter: 2009Q3

REPORT INFORMATION
  Report Type: 
  Country: None (occurrence: None)
  Receive Date: 20090829
  Receipt Date: 20090520
  Transmission Date: 20100115
  Serious: No
  Sender: FDA-Public Use
  Company Number: US-ABBOTT-09P-163-0574704-00

PATIENT
  Sex: Male
  Weight: 79.45 kg

DRUGS (8)
  1. SIMCOR [Suspect]
     Indication: BLOOD CHOLESTEROL INCREASED
     Dosage: 500/20 MILLIGRAMS
     Dates: start: 20090501
  2. SIMCOR [Suspect]
     Indication: BLOOD TRIGLYCERIDES INCREASED
  3. LANTUS [Concomitant]
     Indication: DRUG USE FOR UNKNOWN INDICATION
  4. EXFORGE [Concomitant]
     Indication: DRUG USE FOR UNKNOWN INDICATION
  5. ASPIRIN [Concomitant]
     Indication: DRUG USE FOR UNKNOWN INDICATION
  6. TEKTURNA [Concomitant]
     Indication: DRUG USE FOR UNKNOWN INDICATION
  7. LOPID [Concomitant]
     Indication: DRUG USE FOR UNKNOWN INDICATION
  8. HYTRIN [Concomitant]
     Indication: DRUG USE FOR UNKNOWN INDICATION

REACTIONS (1)
  - MUSCLE SPASMS [None]
